FAERS Safety Report 10171848 (Version 1)
Quarter: 2014Q2

REPORT INFORMATION
  Report Type: Spontaneous
  Country: US (occurrence: None)
  Receive Date: 20140428
  Receipt Date: 20140428
  Transmission Date: 20141212
  Serious: Yes (Disabling)
  Sender: FDA-Public Use
  Company Number: 2013GMK005973

PATIENT
  Sex: Female
  Weight: 75 kg

DRUGS (1)
  1. CITAL (CITALOPRAM HYDROBROMIDE) TABLET, [Suspect]
     Indication: DEPRESSION
     Dosage: 10 MG, QD, ORAL
     Route: 048
     Dates: start: 2008

REACTIONS (1)
  - Urinary incontinence [None]
